FAERS Safety Report 16144298 (Version 2)
Quarter: 2019Q2

REPORT INFORMATION
  Report Type: Report from Study
  Country: None (occurrence: US)
  Receive Date: 20190401
  Receipt Date: 20190425
  Transmission Date: 20190711
  Serious: Yes (Other)
  Sender: FDA-Public Use
  Company Number: US-ABBVIE-19K-163-2724825-00

PATIENT
  Age: 30 Year
  Sex: Female
  Weight: 68.1 kg

DRUGS (4)
  1. HUMIRA [Suspect]
     Active Substance: ADALIMUMAB
     Route: 058
     Dates: start: 201902
  2. HUMIRA [Suspect]
     Active Substance: ADALIMUMAB
     Indication: PSORIASIS
     Route: 058
     Dates: start: 201608, end: 201901
  3. HUMIRA [Suspect]
     Active Substance: ADALIMUMAB
     Indication: PSORIATIC ARTHROPATHY
     Route: 058
     Dates: start: 201901, end: 201902
  4. HYDROXYZINE [Concomitant]
     Active Substance: HYDROXYZINE HYDROCHLORIDE
     Indication: ANXIETY

REACTIONS (6)
  - Respiratory tract infection [Recovered/Resolved]
  - Sinusitis [Recovered/Resolved]
  - Arthralgia [Recovered/Resolved]
  - Respiratory tract infection [Recovered/Resolved]
  - Sinusitis [Recovered/Resolved]
  - Adenocarcinoma of the cervix [Not Recovered/Not Resolved]

NARRATIVE: CASE EVENT DATE: 201809
